FAERS Safety Report 8400399 (Version 2)
Quarter: 2013Q4

REPORT INFORMATION
  Report Type: Report from Study
  Country: US (occurrence: US)
  Receive Date: 20120210
  Receipt Date: 20131227
  Transmission Date: 20140711
  Serious: Yes (Hospitalization)
  Sender: FDA-Public Use
  Company Number: US-PFIZER INC-2011245363

PATIENT
  Age: 89 Year
  Sex: Female
  Weight: 48 kg

DRUGS (12)
  1. AXITINIB [Suspect]
     Indication: METASTATIC RENAL CELL CARCINOMA
     Dosage: 5 MG, 2X/DAY, POST-LEAD IN PERIOD
     Route: 048
     Dates: start: 20100318, end: 20111012
  2. GLIPIZIDE [Concomitant]
     Indication: DIABETES MELLITUS
     Dosage: 5 MG, 2X/DAY
     Route: 048
     Dates: start: 1999
  3. ACTOS [Concomitant]
     Indication: DIABETES MELLITUS
     Dosage: 15 MG, 1X/DAY
     Route: 048
     Dates: start: 1999
  4. ALTACE [Concomitant]
     Indication: HYPERTENSION
     Dosage: 10 MG, 1X/DAY
     Route: 048
     Dates: start: 1999
  5. ASPIRIN [Concomitant]
     Indication: PROPHYLAXIS
     Dosage: 81 MG, 1X/DAY
     Dates: start: 2005
  6. NORVASC [Concomitant]
     Indication: HYPERTENSION
     Dosage: 5 MG, 2X/DAY
     Route: 048
     Dates: start: 20100401
  7. SYNTHROID [Concomitant]
     Indication: HYPOTHYROIDISM
     Dosage: 75 MG, 1X/DAY
     Route: 048
     Dates: start: 20100712
  8. LOMOTIL [Concomitant]
     Indication: DIARRHOEA
     Dosage: 4 MG, AS NEEDED
     Route: 048
     Dates: start: 20101027
  9. IMODIUM [Concomitant]
     Indication: DIARRHOEA
     Dosage: 1 TABLET, AS NEEDED
     Route: 048
     Dates: start: 20100810
  10. CHROMIUM PICOLINATE [Concomitant]
     Indication: SUPPLEMENTATION THERAPY
  11. FISH OIL [Concomitant]
     Indication: SUPPLEMENTATION THERAPY
  12. CALCIUM CARBONATE [Concomitant]

REACTIONS (1)
  - Postoperative wound infection [Recovered/Resolved]
